FAERS Safety Report 4361482-7 (Version None)
Quarter: 2004Q2

REPORT INFORMATION
  Report Type: 
  Country: None (occurrence: None)
  Receive Date: 20040521
  Receipt Date: 20030828
  Transmission Date: 20050107
  Serious: No
  Sender: FDA-Public Use
  Company Number: US-GLAXOSMITHKLINE-A0423979A

PATIENT
  Age: 40 Year
  Sex: Male

DRUGS (2)
  1. ZYBAN [Suspect]
     Dosage: 150MG TWICE PER DAY
     Route: 048
     Dates: start: 20030701, end: 20030827
  2. DOXYCYCLINE [Concomitant]

REACTIONS (8)
  - AGITATION [None]
  - ANXIETY [None]
  - DIZZINESS [None]
  - DRUG INEFFECTIVE [None]
  - FLIGHT OF IDEAS [None]
  - INSOMNIA [None]
  - MOOD ALTERED [None]
  - RESTLESSNESS [None]
